FAERS Safety Report 8361292-X (Version None)
Quarter: 2012Q2

REPORT INFORMATION
  Report Type: 
  Country: None (occurrence: None)
  Receive Date: 20120515
  Receipt Date: 20110805
  Transmission Date: 20120825
  Serious: No
  Sender: FDA-Public Use
  Company Number: US-ALEXION-A201101214

PATIENT

DRUGS (2)
  1. SOLIRIS [Suspect]
     Dosage: 900 MG Q 12 DAYS
     Route: 042
  2. SOLIRIS [Suspect]
     Indication: PAROXYSMAL NOCTURNAL HAEMOGLOBINURIA
     Dosage: 900 MG Q2W
     Route: 042

REACTIONS (4)
  - DYSPHAGIA [None]
  - BLOOD LACTATE DEHYDROGENASE INCREASED [None]
  - ABDOMINAL PAIN UPPER [None]
  - HAEMOGLOBINURIA [None]
